FAERS Safety Report 5792291-X (Version None)
Quarter: 2008Q2

REPORT INFORMATION
  Report Type: 
  Country: None (occurrence: None)
  Receive Date: 20080626
  Receipt Date: 20080306
  Transmission Date: 20081010
  Serious: No
  Sender: FDA-Public Use
  Company Number: US-ASTRAZENECA-2008UW04732

PATIENT
  Age: 78 Year
  Sex: Female

DRUGS (4)
  1. PULMICORT FLEXHALER [Suspect]
     Indication: SARCOIDOSIS
     Route: 055
     Dates: start: 20080303
  2. PULMICORT FLEXHALER [Suspect]
     Indication: NASOPHARYNGITIS
     Route: 055
     Dates: start: 20080303
  3. PULMICORT FLEXHALER [Suspect]
     Indication: NASAL CONGESTION
     Route: 055
     Dates: start: 20080303
  4. NASONEX [Concomitant]

REACTIONS (3)
  - CHEST PAIN [None]
  - ORAL PAIN [None]
  - TOOTHACHE [None]
